FAERS Safety Report 9133156 (Version 1)
Quarter: 2013Q1

REPORT INFORMATION
  Report Type: Spontaneous
  Country: US (occurrence: US)
  Receive Date: 20130116
  Receipt Date: 20130116
  Transmission Date: 20140127
  Serious: No
  Sender: FDA-Public Use
  Company Number: US-009507513-1209USA003642

PATIENT
  Sex: Female

DRUGS (1)
  1. NASONEX [Suspect]
     Dosage: 50 MCG 1 STANDARD DOSE OF 17, 2 SPRAYS IN EACH NOSTRIL
     Route: 055

REACTIONS (2)
  - Drug dose omission [Unknown]
  - Product container issue [Unknown]
